FAERS Safety Report 7530110-1 (Version None)
Quarter: 2011Q2

REPORT INFORMATION
  Report Type: 
  Country: None (occurrence: None)
  Receive Date: 20110606
  Receipt Date: 20110606
  Transmission Date: 20111010
  Serious: No
  Sender: FDA-Public Use
  Company Number: None

PATIENT
  Sex: Female
  Weight: 55.3388 kg

DRUGS (3)
  1. LEVOTHYROXINE SODIUM [Concomitant]
  2. NIASPAN [Concomitant]
  3. BUPROPION HCL [Suspect]
     Indication: DEPRESSION
     Dosage: 300 ONCE A DAY ORAL
     Route: 048
     Dates: start: 20100511, end: 20101217

REACTIONS (1)
  - ALOPECIA [None]
